FAERS Safety Report 4798990-0 (Version None)
Quarter: 2005Q4

REPORT INFORMATION
  Report Type: 
  Country: None (occurrence: None)
  Receive Date: 20051014
  Receipt Date: 20050706
  Transmission Date: 20060501
  Serious: Yes (Other)
  Sender: FDA-Public Use
  Company Number: JP-ABBOTT-05P-087-0304928-00

PATIENT
  Age: 41 Year
  Sex: Male

DRUGS (11)
  1. NORVIR [Suspect]
     Indication: HIV INFECTION
     Route: 048
     Dates: start: 19990123, end: 20011207
  2. DIDANOSINE [Suspect]
     Indication: HIV INFECTION
     Route: 048
     Dates: start: 19920904, end: 20010416
  3. VIDEX EC [Suspect]
     Indication: HIV INFECTION
     Route: 048
     Dates: start: 20010417, end: 20011207
  4. EFAVIRENZ [Suspect]
     Indication: HIV INFECTION
     Route: 048
     Dates: start: 20011208
  5. STAVUDINE [Suspect]
     Indication: HIV INFECTION
     Route: 048
     Dates: start: 20011208, end: 20040702
  6. LAMIVUDINE [Suspect]
     Indication: HIV INFECTION
     Route: 048
     Dates: start: 20011208, end: 20040703
  7. LAMIVUDINE [Suspect]
     Route: 048
     Dates: start: 20040703
  8. PEGINTERFERON ALFA-2B [Suspect]
     Indication: HEPATITIS C
     Route: 030
     Dates: start: 20050119
  9. RIBAVIRIN [Suspect]
     Indication: HEPATITIS C
     Dosage: 200 MG IN THE MORNING AND 400 MG AT NIGHT
     Route: 048
     Dates: start: 20050119
  10. VIREAD [Concomitant]
     Indication: HIV INFECTION
     Route: 048
     Dates: start: 20040703
  11. FACTOR VIII, RECOMBINANT [Concomitant]
     Indication: DRUG USE FOR UNKNOWN INDICATION

REACTIONS (4)
  - HEPATIC FUNCTION ABNORMAL [None]
  - HEPATITIS C [None]
  - HYPERLIPIDAEMIA [None]
  - PANCYTOPENIA [None]
